FAERS Safety Report 8301462-X (Version None)
Quarter: 2012Q2

REPORT INFORMATION
  Report Type: 
  Country: None (occurrence: None)
  Receive Date: 20120420
  Receipt Date: 20120405
  Transmission Date: 20120825
  Serious: Yes (Hospitalization)
  Sender: FDA-Public Use
  Company Number: DE-ROCHE-1053575

PATIENT
  Age: 70 Year
  Sex: Female
  Weight: 78 kg

DRUGS (2)
  1. METAMIZOL [Concomitant]
     Route: 048
  2. ACTEMRA [Suspect]
     Indication: RHEUMATOID ARTHRITIS
     Dosage: LAST DOSE PRIOR TO SAE:15/MAR/2012
     Route: 042
     Dates: start: 20120103

REACTIONS (3)
  - INTERVERTEBRAL DISC PROTRUSION [None]
  - NERVE ROOT LESION [None]
  - OSTEOARTHRITIS [None]
